FAERS Safety Report 14333805 (Version 5)
Quarter: 2018Q1

REPORT INFORMATION
  Report Type: Spontaneous
  Country: US (occurrence: US)
  Receive Date: 20171228
  Receipt Date: 20180326
  Transmission Date: 20180509
  Serious: No
  Sender: FDA-Public Use
  Company Number: US-BAYER-2017-247414

PATIENT
  Age: 22 Year
  Sex: Female

DRUGS (3)
  1. MIRENA [Suspect]
     Active Substance: LEVONORGESTREL
     Indication: CONTRACEPTION
     Dosage: 20 MCG/24HR, CONT
     Route: 015
     Dates: start: 20171020, end: 20180220
  2. MIRENA [Suspect]
     Active Substance: LEVONORGESTREL
     Indication: CONTRACEPTION
     Dosage: 20 MCG/24HR, CONT
     Route: 015
     Dates: start: 20130117, end: 20171020
  3. MIRENA [Suspect]
     Active Substance: LEVONORGESTREL
     Indication: CONTRACEPTION

REACTIONS (7)
  - Post procedural discomfort [None]
  - Genital injury [None]
  - Device use error [None]
  - Pain [None]
  - Dyspareunia [Unknown]
  - Device physical property issue [Unknown]
  - Post procedural discomfort [None]

NARRATIVE: CASE EVENT DATE: 2012
